FAERS Safety Report 4725758-3 (Version None)
Quarter: 2005Q3

REPORT INFORMATION
  Report Type: 
  Country: None (occurrence: None)
  Receive Date: 20050725
  Receipt Date: 20050717
  Transmission Date: 20060218
  Serious: Yes (Other)
  Sender: FDA-Public Use
  Company Number: PHEH2005US07936

PATIENT
  Age: 64 Year
  Sex: Male
  Weight: 99.8 kg

DRUGS (2)
  1. LAMISIL [Suspect]
     Dosage: ONCE/ SINGLE, ORAL
     Route: 048
  2. HYDROCHLOROTHIAZIDE [Concomitant]

REACTIONS (5)
  - ACCIDENTAL EXPOSURE [None]
  - HAEMATOCHEZIA [None]
  - HAEMOPTYSIS [None]
  - MEDICATION ERROR [None]
  - NAUSEA [None]
